FAERS Safety Report 11317332 (Version 1)
Quarter: 2015Q3

REPORT INFORMATION
  Report Type: Spontaneous
  Country: NL (occurrence: NL)
  Receive Date: 20150728
  Receipt Date: 20150728
  Transmission Date: 20151125
  Serious: Yes (Hospitalization, Other)
  Sender: FDA-Public Use
  Company Number: PHHY2015NL085808

PATIENT
  Age: 78 Year
  Sex: Male

DRUGS (2)
  1. FOLIC [Concomitant]
     Indication: RHEUMATOID ARTHRITIS
     Dosage: 2.5 MG, UNK, 6 DAYS A WEEK
     Route: 065
  2. METHOTREXATE [Suspect]
     Active Substance: METHOTREXATE
     Indication: RHEUMATOID ARTHRITIS
     Dosage: 15 MG, QW
     Route: 048

REACTIONS (6)
  - Agitation [Recovered/Resolved]
  - Cognitive disorder [Recovered/Resolved]
  - Apathy [Recovered/Resolved]
  - Abnormal behaviour [Recovered/Resolved]
  - Depression [Unknown]
  - Dementia [Recovered/Resolved]
